FAERS Safety Report 10149485 (Version 3)
Quarter: 2014Q2

REPORT INFORMATION
  Report Type: Spontaneous
  Country: VE (occurrence: VE)
  Receive Date: 20140502
  Receipt Date: 20140515
  Transmission Date: 20141212
  Serious: Yes (Death, Life-Threatening, Hospitalization)
  Sender: FDA-Public Use
  Company Number: VE-B.I. PHARMACEUTICALS,INC./RIDGEFIELD-2014-BI-19300VB

PATIENT
  Age: 56 Year
  Sex: Female

DRUGS (3)
  1. PRADAXA [Suspect]
     Indication: ATRIAL FIBRILLATION
     Dosage: 300 MG
     Route: 065
     Dates: start: 201309, end: 20140428
  2. CONCOR [Concomitant]
     Route: 065
  3. DIGOXINA [Concomitant]
     Route: 065

REACTIONS (4)
  - Haemorrhagic stroke [Fatal]
  - Convulsion [Unknown]
  - Brain oedema [Unknown]
  - Haematoma [Unknown]
